FAERS Safety Report 8129556-2 (Version None)
Quarter: 2012Q1

REPORT INFORMATION
  Report Type: 
  Country: None (occurrence: None)
  Receive Date: 20120210
  Receipt Date: 20120201
  Transmission Date: 20120608
  Serious: Yes (Death, Hospitalization)
  Sender: FDA-Public Use
  Company Number: US-GLAXOSMITHKLINE-A0857563A

PATIENT
  Age: 70 Year
  Sex: Female

DRUGS (6)
  1. CORTICOSTEROIDS [Concomitant]
  2. VANCOMYCIN [Concomitant]
  3. PRIMAXIN [Concomitant]
  4. PROMACTA [Suspect]
     Indication: IDIOPATHIC THROMBOCYTOPENIC PURPURA
     Dosage: 75MG PER DAY
     Route: 048
     Dates: start: 20090428, end: 20090615
  5. BACTRIM [Concomitant]
  6. AMICAR [Concomitant]

REACTIONS (10)
  - NON-HODGKIN'S LYMPHOMA [None]
  - PLATELET COUNT DECREASED [None]
  - MYELODYSPLASTIC SYNDROME [None]
  - THROMBOCYTOPENIA [None]
  - TONGUE BITING [None]
  - GINGIVAL BLEEDING [None]
  - PYREXIA [None]
  - NIGHT SWEATS [None]
  - HAEMORRHAGE [None]
  - ANAEMIA [None]
